FAERS Safety Report 7700528-2 (Version None)
Quarter: 2011Q3

REPORT INFORMATION
  Report Type: 
  Country: None (occurrence: None)
  Receive Date: 20110822
  Receipt Date: 20110815
  Transmission Date: 20111222
  Serious: Yes (Hospitalization)
  Sender: FDA-Public Use
  Company Number: BR-B.I. PHARMACEUTICALS,INC./RIDGEFIELD-2011-BR-00795BR

PATIENT
  Sex: Female

DRUGS (4)
  1. DUOVENT [Suspect]
     Indication: ASTHMA
     Route: 055
     Dates: start: 19950101
  2. DUOVENT [Suspect]
     Route: 055
     Dates: start: 20110813, end: 20110814
  3. COMBIVENT [Suspect]
     Indication: ASTHMA
     Route: 055
  4. BEROTEC [Suspect]
     Indication: ASTHMA
     Route: 055

REACTIONS (5)
  - DYSPNOEA [None]
  - COUGH [None]
  - DRUG INEFFECTIVE [None]
  - CHOKING [None]
  - FATIGUE [None]
